FAERS Safety Report 7499851-9 (Version None)
Quarter: 2011Q2

REPORT INFORMATION
  Report Type: 
  Country: None (occurrence: None)
  Receive Date: 20110524
  Receipt Date: 20110516
  Transmission Date: 20111010
  Serious: Yes (Hospitalization)
  Sender: FDA-Public Use
  Company Number: US-ELI_LILLY_AND_COMPANY-US201105004839

PATIENT
  Sex: Female

DRUGS (4)
  1. FOLIC ACID [Concomitant]
     Dosage: UNK, UNKNOWN
     Route: 065
  2. AVASTIN [Concomitant]
     Dosage: UNK, UNKNOWN
     Route: 065
  3. B12-VITAMIN [Concomitant]
     Dosage: UNK, UNKNOWN
     Route: 065
  4. ALIMTA [Suspect]
     Indication: LUNG CANCER METASTATIC
     Dosage: 850 MG, UNKNOWN
     Route: 065
     Dates: start: 20110427, end: 20110505

REACTIONS (3)
  - MYOSITIS [None]
  - PNEUMOCYSTIS JIROVECI INFECTION [None]
  - DERMATITIS [None]
